FAERS Safety Report 4307734-8 (Version None)
Quarter: 2004Q1

REPORT INFORMATION
  Report Type: 
  Country: None (occurrence: None)
  Receive Date: 20040227
  Receipt Date: 20040227
  Transmission Date: 20041129
  Serious: Yes (Other)
  Sender: FDA-Public Use
  Company Number: None

PATIENT
  Sex: Male
  Weight: 92.9874 kg

DRUGS (3)
  1. FLUOXETINE [Suspect]
     Indication: BIPOLAR DISORDER
     Dosage: 20 MG 3 PO QD
     Route: 048
     Dates: start: 20030801, end: 20031201
  2. LITHIUM [Concomitant]
  3. AMBIEN [Concomitant]

REACTIONS (4)
  - AGITATION [None]
  - AKATHISIA [None]
  - MYOCLONUS [None]
  - PHARMACEUTICAL PRODUCT COMPLAINT [None]
